FAERS Safety Report 16886607 (Version 1)
Quarter: 2019Q4

REPORT INFORMATION
  Report Type: Spontaneous
  Country: US (occurrence: US)
  Receive Date: 20191004
  Receipt Date: 20191004
  Transmission Date: 20200122
  Serious: No
  Sender: FDA-Public Use
  Company Number: US-SA-2019SA271110

PATIENT
  Age: 81 Year
  Sex: Male

DRUGS (1)
  1. ASPERCREME NOS [Suspect]
     Active Substance: MENTHOL\TROLAMINE SALICYLATE

REACTIONS (3)
  - Weight decreased [Unknown]
  - Gastrooesophageal reflux disease [Unknown]
  - Decreased appetite [Unknown]
